FAERS Safety Report 8840552 (Version 1)
Quarter: 2012Q4

REPORT INFORMATION
  Report Type: 
  Country: US (occurrence: US)
  Receive Date: 20121015
  Receipt Date: 20121015
  Transmission Date: 20130627
  Serious: Yes (Other)
  Sender: FDA-Public Use
  Company Number: US-ELI_LILLY_AND_COMPANY-US201210002163

PATIENT
  Age: 72 Year
  Sex: Female
  Weight: 45.35 kg

DRUGS (1)
  1. EVISTA [Suspect]
     Indication: OSTEOPOROSIS
     Dosage: UNK

REACTIONS (2)
  - Hip fracture [Unknown]
  - Fall [Unknown]
